FAERS Safety Report 8415074-0 (Version None)
Quarter: 2012Q2

REPORT INFORMATION
  Report Type: 
  Country: None (occurrence: None)
  Receive Date: 20120606
  Receipt Date: 20120528
  Transmission Date: 20120825
  Serious: Yes (Hospitalization, Other)
  Sender: FDA-Public Use
  Company Number: JP-VERTEX PHARMACEUTICALS INC.-AE-2012-006322

PATIENT
  Age: 61 Year
  Sex: Male

DRUGS (11)
  1. PEG-INTRON [Concomitant]
     Route: 058
     Dates: start: 20120320, end: 20120501
  2. MH OINTMENT [Concomitant]
     Route: 061
     Dates: start: 20120305
  3. REBETOL [Concomitant]
     Indication: HEPATITIS C
     Route: 048
     Dates: start: 20120306, end: 20120507
  4. PEG-INTRON [Concomitant]
     Route: 058
     Dates: start: 20120515
  5. RABEPRAZOLE SODIUM [Concomitant]
     Route: 048
     Dates: start: 20091019
  6. ATARAX [Concomitant]
     Route: 048
     Dates: start: 20120305
  7. TELAVIC (TELAPREVIR) [Suspect]
     Indication: HEPATITIS C
     Route: 048
     Dates: start: 20120306, end: 20120507
  8. PEG-INTRON [Concomitant]
     Indication: HEPATITIS C
     Route: 058
     Dates: start: 20120306, end: 20120313
  9. ALLEGRA [Concomitant]
     Route: 048
     Dates: start: 20120305
  10. TELAVIC (TELAPREVIR) [Suspect]
     Route: 048
     Dates: start: 20120515
  11. REBETOL [Concomitant]
     Route: 048
     Dates: start: 20120515

REACTIONS (6)
  - ANAEMIA [None]
  - BLOOD URIC ACID INCREASED [None]
  - PNEUMONIA [None]
  - PLATELET COUNT DECREASED [None]
  - RASH [None]
  - PRURITUS [None]
